FAERS Safety Report 25143881 (Version 2)
Quarter: 2025Q2

REPORT INFORMATION
  Report Type: Spontaneous
  Country: CN (occurrence: CN)
  Receive Date: 20250401
  Receipt Date: 20250407
  Transmission Date: 20250717
  Serious: Yes (Life-Threatening, Hospitalization, Other)
  Sender: UNICHEM
  Company Number: CN-UNICHEM LABORATORIES LIMITED-UNI-2025-CN-001679

PATIENT

DRUGS (1)
  1. AMLODIPINE [Suspect]
     Active Substance: AMLODIPINE BESYLATE
     Indication: Product used for unknown indication
     Route: 048

REACTIONS (8)
  - Vasoplegia syndrome [Unknown]
  - Cardiogenic shock [Unknown]
  - Intentional overdose [Unknown]
  - Pneumonia [Unknown]
  - Toxicity to various agents [Unknown]
  - Left ventricular failure [Unknown]
  - Acute kidney injury [Unknown]
  - Pulmonary oedema [Unknown]
